FAERS Safety Report 7846700-2 (Version None)
Quarter: 2011Q4

REPORT INFORMATION
  Report Type: 
  Country: None (occurrence: None)
  Receive Date: 20111025
  Receipt Date: 20111018
  Transmission Date: 20120403
  Serious: Yes (Other)
  Sender: FDA-Public Use
  Company Number: PHHY2011FR89538

PATIENT
  Sex: Female

DRUGS (2)
  1. LIORESAL [Concomitant]
  2. GILENYA [Suspect]
     Route: 048

REACTIONS (1)
  - STREPTOCOCCAL INFECTION [None]
